FAERS Safety Report 4273327-4 (Version None)
Quarter: 2004Q1

REPORT INFORMATION
  Report Type: 
  Country: None (occurrence: None)
  Receive Date: 20040114
  Receipt Date: 20040105
  Transmission Date: 20041129
  Serious: Yes (Hospitalization)
  Sender: FDA-Public Use
  Company Number: 2004193272FR

PATIENT
  Age: 51 Year
  Sex: Female
  Weight: 59 kg

DRUGS (3)
  1. XANAX [Suspect]
     Dosage: ORAL
     Route: 048
     Dates: start: 20031102, end: 20031110
  2. INSULIN [Suspect]
     Dosage: SUBCUTANEOUS
     Route: 058
     Dates: start: 20031101, end: 20031104
  3. AMARYL [Suspect]
     Dosage: ORAL
     Route: 048
     Dates: start: 20031103

REACTIONS (3)
  - ANAEMIA [None]
  - DIABETES MELLITUS INADEQUATE CONTROL [None]
  - GLUCOSE-6-PHOSPHATE DEHYDROGENASE DEFICIENCY [None]
